FAERS Safety Report 7740143-8 (Version None)
Quarter: 2011Q3

REPORT INFORMATION
  Report Type: 
  Country: None (occurrence: None)
  Receive Date: 20110909
  Receipt Date: 20110831
  Transmission Date: 20111222
  Serious: Yes (Death, Hospitalization, Other)
  Sender: FDA-Public Use
  Company Number: IL-ROCHE-798789

PATIENT
  Age: 52 Year
  Sex: Female

DRUGS (9)
  1. METHOTREXATE [Concomitant]
  2. MABTHERA [Suspect]
     Dosage: RECEIVED ONE TREATMENT
     Route: 065
  3. PREDNISONE [Concomitant]
  4. IMURAN [Concomitant]
  5. HUMIRA [Concomitant]
  6. ACTEMRA [Suspect]
     Indication: VASCULITIS
     Dosage: AS REPORTED:FORM; INFUSION. RECEIVED 2 INFUSIONS
     Route: 042
     Dates: start: 20110801
  7. SEPTRA [Concomitant]
     Route: 042
  8. REMICADE [Concomitant]
  9. CYCLOPHOSPHAMIDE [Concomitant]
     Route: 042

REACTIONS (4)
  - LUNG INFECTION [None]
  - PULMONARY EMBOLISM [None]
  - DRUG INEFFECTIVE [None]
  - CARDIAC ARREST [None]
